FAERS Safety Report 7544377-7 (Version None)
Quarter: 2011Q2

REPORT INFORMATION
  Report Type: 
  Country: None (occurrence: None)
  Receive Date: 20110613
  Receipt Date: 20080422
  Transmission Date: 20111010
  Serious: Yes (Death)
  Sender: FDA-Public Use
  Company Number: PHHY2008CA05561

PATIENT
  Sex: Male

DRUGS (5)
  1. CRESTOR [Concomitant]
     Dosage: 5 MG, QD
  2. GLYBURIDE [Concomitant]
     Dosage: 5 MG, QD
  3. VITAMIN B-12 [Concomitant]
     Dosage: 1200 MG, UNK
  4. DIOVAN [Suspect]
     Indication: HYPERTENSION
     Dosage: 80 MG, UNK
     Route: 048
     Dates: start: 20070922
  5. VITAMIN B-12 [Concomitant]
     Dosage: 1200 MG, UNK

REACTIONS (1)
  - MYOCARDIAL INFARCTION [None]
